FAERS Safety Report 17492538 (Version 6)
Quarter: 2020Q4

REPORT INFORMATION
  Report Type: Spontaneous
  Country: US (occurrence: US)
  Receive Date: 20200303
  Receipt Date: 20201201
  Transmission Date: 20210113
  Serious: Yes (Congenital Anomaly, Other)
  Sender: FDA-Public Use
  Company Number: NVSC2020US059032

PATIENT
  Sex: Male

DRUGS (1)
  1. ZOFRAN [Suspect]
     Active Substance: ONDANSETRON HYDROCHLORIDE
     Indication: FOETAL EXPOSURE DURING PREGNANCY
     Dosage: MOTHER DOSE: 08 MG, Q8H
     Route: 064

REACTIONS (42)
  - Eczema [Unknown]
  - Upper respiratory tract infection [Unknown]
  - Joint noise [Unknown]
  - Rhinorrhoea [Unknown]
  - Otorrhoea [Unknown]
  - Pyrexia [Unknown]
  - Asthma [Unknown]
  - Head injury [Unknown]
  - Nose deformity [Unknown]
  - Bronchiolitis [Recovered/Resolved]
  - Bradycardia [Unknown]
  - Gastrooesophageal reflux disease [Unknown]
  - Constipation [Unknown]
  - Nasal congestion [Unknown]
  - Cough [Unknown]
  - Conjunctivitis [Unknown]
  - Sleep disorder [Unknown]
  - Congenital eye disorder [Unknown]
  - Eustachian tube dysfunction [Unknown]
  - Ear infection [Unknown]
  - Eye haematoma [Unknown]
  - Weight gain poor [Unknown]
  - Bronchial hyperreactivity [Unknown]
  - Rhinitis allergic [Unknown]
  - Cleft palate [Unknown]
  - Congenital hypothyroidism [Unknown]
  - Otitis media chronic [Unknown]
  - Neonatal respiratory distress [Unknown]
  - Foetal exposure during pregnancy [Unknown]
  - Middle ear effusion [Unknown]
  - Pain [Unknown]
  - Choking sensation [Unknown]
  - Eyelid abrasion [Unknown]
  - Cleft uvula [Unknown]
  - Vomiting [Unknown]
  - Ear pain [Unknown]
  - Tonsillar hypertrophy [Unknown]
  - Cleft lip [Unknown]
  - Conductive deafness [Unknown]
  - Dyspnoea [Unknown]
  - Lacrimation increased [Unknown]
  - Wheezing [Unknown]
